FAERS Safety Report 10188904 (Version 1)
Quarter: 2014Q2

REPORT INFORMATION
  Report Type: Spontaneous
  Country: US (occurrence: US)
  Receive Date: 20140522
  Receipt Date: 20140522
  Transmission Date: 20141212
  Serious: No
  Sender: FDA-Public Use
  Company Number: US-ZOGENIX, INC.-2014ZX000078

PATIENT
  Age: 59 Year
  Sex: Male
  Weight: 83.99 kg

DRUGS (2)
  1. ZOHYDRO ER [Suspect]
     Indication: BACK PAIN
     Route: 048
     Dates: start: 201403, end: 201403
  2. ZOHYDRO ER [Suspect]
     Route: 048
     Dates: start: 201403, end: 20140330

REACTIONS (2)
  - Drug ineffective [Recovered/Resolved]
  - Drug effect incomplete [Recovered/Resolved]
